FAERS Safety Report 9872104 (Version 2)
Quarter: 2014Q1

REPORT INFORMATION
  Report Type: Spontaneous
  Country: US (occurrence: US)
  Receive Date: 20140205
  Receipt Date: 20140205
  Transmission Date: 20141002
  Serious: No
  Sender: FDA-Public Use
  Company Number: US-ALLERGAN-1306975US

PATIENT
  Age: 58 Year
  Sex: Female

DRUGS (4)
  1. BOTOX COSMETIC [Suspect]
     Indication: SKIN WRINKLING
     Dosage: 20 UNITS, SINGLE
     Route: 030
     Dates: start: 20130506, end: 20130506
  2. BOTOX COSMETIC [Suspect]
     Indication: SKIN WRINKLING
     Dosage: 15 UNITS, SINGLE
     Route: 030
     Dates: start: 20130506, end: 20130506
  3. JUVEDERM ULTRA XC [Suspect]
     Indication: DERMAL FILLER INJECTION
     Dosage: UNK, SINGLE
     Route: 030
     Dates: start: 20130506, end: 20130506
  4. JUVEDERM ULTRA PLUS XC [Suspect]
     Indication: DERMAL FILLER INJECTION
     Dosage: UNK
     Dates: start: 20130506, end: 20130506

REACTIONS (2)
  - Neck pain [Recovered/Resolved]
  - Contusion [Recovered/Resolved]
